FAERS Safety Report 5926151-8 (Version None)
Quarter: 2008Q4

REPORT INFORMATION
  Report Type: 
  Country: None (occurrence: None)
  Receive Date: 20081017
  Receipt Date: 20080826
  Transmission Date: 20090506
  Serious: Yes (Hospitalization)
  Sender: FDA-Public Use
  Company Number: 2008BI025683

PATIENT
  Age: 54 Year
  Sex: Female

DRUGS (2)
  1. TYSABRI [Suspect]
     Indication: MULTIPLE SCLEROSIS
     Dosage: 300 MG;QW;IV
     Route: 042
     Dates: start: 20070625, end: 20080109
  2. AVONEX [Concomitant]

REACTIONS (4)
  - ASTHENIA [None]
  - DECUBITUS ULCER [None]
  - NEUROMYELITIS OPTICA [None]
  - OPPORTUNISTIC INFECTION [None]
